FAERS Safety Report 7932011 (Version 8)
Quarter: 2014Q4

REPORT INFORMATION
  Report Type: Report from Study
  Country: US (occurrence: US)
  Receive Date: 20110505
  Receipt Date: 20141201
  Transmission Date: 20150529
  Serious: Yes (Hospitalization)
  Sender: FDA-Public Use
  Company Number: US-BRISTOL-MYERS SQUIBB COMPANY-15710072

PATIENT
  Age: 80 Year
  Sex: Male
  Weight: 114.5 kg

DRUGS (13)
  1. FERROUS SULFATE [Concomitant]
     Active Substance: FERROUS SULFATE\FERROUS SULFATE, DRIED
  2. TERAZOSIN [Concomitant]
     Active Substance: TERAZOSIN\TERAZOSIN HYDROCHLORIDE
  3. PACERONE [Concomitant]
     Active Substance: AMIODARONE HYDROCHLORIDE
  4. ATENOLOL. [Suspect]
     Active Substance: ATENOLOL
  5. LASIX [Concomitant]
     Active Substance: FUROSEMIDE
  6. OXYCODONE [Suspect]
     Active Substance: OXYCODONE
  7. COUMADIN [Concomitant]
     Active Substance: WARFARIN SODIUM
  8. DILAUDID [Concomitant]
     Active Substance: HYDROMORPHONE HYDROCHLORIDE
  9. ZYLOPRIM [Concomitant]
     Active Substance: ALLOPURINOL
  10. IPILIMUMAB [Suspect]
     Active Substance: IPILIMUMAB
     Indication: MALIGNANT MELANOMA
     Dosage: LAST DOSE:20MAY11; TOTAL DOSE:1200MG,?NO OFCOURSES:2,CYCLE21DAYS,10MG/KG
     Route: 042
     Dates: start: 20110316
  11. ZYLOPRIM [Concomitant]
     Active Substance: ALLOPURINOL
  12. POTASSIUM [Concomitant]
     Active Substance: POTASSIUM
  13. DURAGESIC [Concomitant]
     Active Substance: FENTANYL

REACTIONS (10)
  - Hypokalaemia [Recovering/Resolving]
  - Dyspnoea [Recovering/Resolving]
  - Lung infection [Recovering/Resolving]
  - Adrenal insufficiency [Recovering/Resolving]
  - Lethargy [Recovering/Resolving]
  - Cardiac arrest [Recovering/Resolving]
  - Ventricular tachycardia [Recovering/Resolving]
  - Dehydration [Recovering/Resolving]
  - Muscular weakness [Recovering/Resolving]
  - Dysphagia [Recovering/Resolving]

NARRATIVE: CASE EVENT DATE: 20110425
